FAERS Safety Report 13005794 (Version 1)
Quarter: 2016Q4

REPORT INFORMATION
  Report Type: Spontaneous
  Country: US (occurrence: US)
  Receive Date: 20161207
  Receipt Date: 20161207
  Transmission Date: 20170207
  Serious: Yes (Other)
  Sender: FDA-Public Use
  Company Number: US-PFIZER INC-2016565483

PATIENT
  Sex: Male

DRUGS (5)
  1. SIMVASTATIN. [Concomitant]
     Active Substance: SIMVASTATIN
     Indication: BLOOD CHOLESTEROL
     Dosage: 40 MG, 1X/DAY
  2. RAPAMUNE [Suspect]
     Active Substance: SIROLIMUS
     Indication: HEART TRANSPLANT
     Dosage: 1 MG, ONE PILL ONE DAY AND 2 NEXT DAY
     Route: 048
  3. CLOPIDOGREL [Concomitant]
     Active Substance: CLOPIDOGREL BISULFATE
     Indication: CARDIAC DISORDER
     Dosage: 75 MG, 1X/DAY
  4. PREDNISONE. [Concomitant]
     Active Substance: PREDNISONE
     Indication: HEART TRANSPLANT
     Dosage: 2.5 DF, 1X/DAY
  5. ZANTAC [Concomitant]
     Active Substance: RANITIDINE HYDROCHLORIDE
     Indication: ABDOMINAL DISCOMFORT
     Dosage: 150 MG, 1X/DAY

REACTIONS (3)
  - Poor peripheral circulation [Not Recovered/Not Resolved]
  - Diabetes mellitus [Not Recovered/Not Resolved]
  - Product use issue [Unknown]
